FAERS Safety Report 13212354 (Version 1)
Quarter: 2017Q1

REPORT INFORMATION
  Report Type: Other
  Country: GB (occurrence: GB)
  Receive Date: 20170210
  Receipt Date: 20170210
  Transmission Date: 20170428
  Serious: Yes (Hospitalization, Other)
  Sender: FDA-Public Use
  Company Number: GB-PERRIGO-17GB001408

PATIENT

DRUGS (2)
  1. IBUPROFEN LYSINE 12063/0071 342 MG [Suspect]
     Active Substance: IBUPROFEN LYSINE
     Indication: ANALGESIC THERAPY
     Route: 048
     Dates: start: 20170129, end: 20170129
  2. MAX STRENGTH SINUS RELIEF CAPSULES 12063/0067 [Suspect]
     Active Substance: ACETAMINOPHEN\CAFFEINE\PHENYLEPHRINE HYDROCHLORIDE
     Indication: SINUS DISORDER
     Route: 048
     Dates: start: 20170129, end: 20170129

REACTIONS (7)
  - Swelling face [Not Recovered/Not Resolved]
  - Eye pruritus [Recovering/Resolving]
  - Lymphadenopathy [Recovering/Resolving]
  - Ear disorder [Unknown]
  - Heart rate increased [Unknown]
  - Pharyngeal oedema [Recovering/Resolving]
  - Hypoaesthesia [Unknown]

NARRATIVE: CASE EVENT DATE: 20170129
